FAERS Safety Report 9088394 (Version 1)
Quarter: 2013Q1

REPORT INFORMATION
  Report Type: Spontaneous
  Country: US (occurrence: US)
  Receive Date: 20130201
  Receipt Date: 20130201
  Transmission Date: 20140127
  Serious: No
  Sender: FDA-Public Use
  Company Number: US-GALDERMA-US-GDP-12415035

PATIENT
  Sex: Female
  Weight: 55 kg

DRUGS (7)
  1. EPIDUO (ADAPALENE) [Suspect]
     Indication: ACNE
     Route: 061
     Dates: start: 201205, end: 20120904
  2. CETAPHIL DERMACONTROL FOAM WASH [Concomitant]
     Indication: THERAPEUTIC SKIN CARE TOPICAL
     Route: 061
     Dates: start: 201206
  3. NORVASC [Concomitant]
     Indication: HYPERTENSION
  4. LATANOPROST OPHTHALMIC [Concomitant]
     Indication: GLAUCOMA
  5. AZOPT OPHTHALMIC SUSPENSION [Concomitant]
     Indication: GLAUCOMA
  6. PURPOSE SPF 15 [Concomitant]
     Indication: PROPHYLAXIS
     Route: 061
  7. NEUTROGENA LOTION [Concomitant]
     Indication: THERAPEUTIC SKIN CARE TOPICAL
     Route: 061
     Dates: start: 201205

REACTIONS (3)
  - Acne [Not Recovered/Not Resolved]
  - Skin burning sensation [Recovered/Resolved]
  - Dry skin [Recovered/Resolved]
